FAERS Safety Report 4336563-4 (Version None)
Quarter: 2004Q2

REPORT INFORMATION
  Report Type: 
  Country: None (occurrence: None)
  Receive Date: 20040407
  Receipt Date: 20040318
  Transmission Date: 20050107
  Serious: Yes (Other)
  Sender: FDA-Public Use
  Company Number: GBS040314653

PATIENT
  Age: 74 Year

DRUGS (3)
  1. XIGRIS [Suspect]
  2. HEPARIN [Concomitant]
  3. WARFARIN SODIUM [Concomitant]

REACTIONS (2)
  - INTERNATIONAL NORMALISED RATIO INCREASED [None]
  - MEDICAL DEVICE COMPLICATION [None]
